FAERS Safety Report 9109324 (Version 2)
Quarter: 2013Q3

REPORT INFORMATION
  Report Type: Report from Study
  Country: MX (occurrence: MX)
  Receive Date: 20130222
  Receipt Date: 20130705
  Transmission Date: 20140515
  Serious: Yes (Death)
  Sender: FDA-Public Use
  Company Number: PHHY2013MX017330

PATIENT
  Age: 61 Year
  Sex: Male

DRUGS (1)
  1. EXFORGE HCT [Suspect]
     Indication: HYPERTENSION
     Dosage: 1 DF, (160 MG VALS, 5 MG AMLO AND 12.5 MG HCTZ), DAILY
     Route: 048
     Dates: start: 20121123

REACTIONS (1)
  - Myocardial infarction [Fatal]
